FAERS Safety Report 14723376 (Version 2)
Quarter: 2018Q2

REPORT INFORMATION
  Report Type: Report from Study
  Country: None (occurrence: IT)
  Receive Date: 20180405
  Receipt Date: 20180409
  Transmission Date: 20180711
  Serious: Yes (Other)
  Sender: FDA-Public Use
  Company Number: IT-ABBVIE-18K-083-2312892-00

PATIENT
  Age: 72 Year
  Sex: Female

DRUGS (2)
  1. CLYSTER [Concomitant]
     Active Substance: GLYCERIN\THYMOL
     Indication: PRODUCT USED FOR UNKNOWN INDICATION
  2. DUODOPA [Suspect]
     Active Substance: CARBIDOPA\LEVODOPA
     Indication: PARKINSON^S DISEASE
     Dosage: MD 7+3??CR 3,8??ED 3
     Route: 050
     Dates: start: 20170620

REACTIONS (4)
  - Flatulence [Recovering/Resolving]
  - Abdominal pain [Recovering/Resolving]
  - Dyschezia [Unknown]
  - Faeces hard [Unknown]

NARRATIVE: CASE EVENT DATE: 20180328
